FAERS Safety Report 23761422 (Version 1)
Quarter: 2024Q2

REPORT INFORMATION
  Report Type: Spontaneous
  Country: US (occurrence: US)
  Receive Date: 20240419
  Receipt Date: 20240419
  Transmission Date: 20240715
  Serious: Yes (Other)
  Sender: FDA-Public Use
  Company Number: US-STERISCIENCE B.V.-2024-ST-000457

PATIENT
  Age: 26 Year
  Sex: Male

DRUGS (6)
  1. AMPICILLIN AND SULBACTAM [Suspect]
     Active Substance: AMPICILLIN SODIUM\SULBACTAM SODIUM
     Indication: Pneumonia
     Dosage: 9 GRAM, Q8H RECEIVED PROLONGED INFUSION OVER 4 HOURS
     Route: 065
  2. AMPICILLIN AND SULBACTAM [Suspect]
     Active Substance: AMPICILLIN SODIUM\SULBACTAM SODIUM
     Indication: Acinetobacter infection
  3. MEROPENEM [Suspect]
     Active Substance: MEROPENEM
     Indication: Pneumonia
     Dosage: 2 GRAM, Q8H RECEIVED OVER 3 HOURS
     Route: 065
  4. MEROPENEM [Suspect]
     Active Substance: MEROPENEM
     Indication: Acinetobacter infection
  5. POLYMYXIN B [Suspect]
     Active Substance: POLYMYXIN B
     Indication: Pneumonia
     Dosage: 25000 INTERNATIONAL UNIT/KILOGRAM, RECEIVED AS LOADING DOSE
     Route: 065
  6. POLYMYXIN B [Suspect]
     Active Substance: POLYMYXIN B
     Indication: Acinetobacter infection
     Dosage: 15000 INTERNATIONAL UNIT/KILOGRAM, Q12H (BID), RECEIVED OVER A 2 HOURS
     Route: 065

REACTIONS (1)
  - Drug ineffective for unapproved indication [Unknown]
